FAERS Safety Report 13441941 (Version 4)
Quarter: 2018Q2

REPORT INFORMATION
  Report Type: Report from Study
  Country: CN (occurrence: CN)
  Receive Date: 20170413
  Receipt Date: 20180511
  Transmission Date: 20180711
  Serious: Yes (Other)
  Sender: FDA-Public Use
  Company Number: PHHY2017CN053923

PATIENT
  Age: 31 Year
  Sex: Female

DRUGS (48)
  1. MYFORTIC [Suspect]
     Active Substance: MYCOPHENOLATE SODIUM
     Dosage: 1440 MG, QD
     Route: 065
     Dates: start: 20170316
  2. METHYLPREDNISOLONE. [Suspect]
     Active Substance: METHYLPREDNISOLONE
     Dosage: 540 MG, QD
     Route: 065
     Dates: start: 20170316, end: 20170317
  3. GANCICLOVIR. [Concomitant]
     Active Substance: GANCICLOVIR
     Indication: ANTIVIRAL TREATMENT
     Dosage: 500 MG, TID
     Route: 048
     Dates: start: 20170325
  4. TIGECYCLINE. [Concomitant]
     Active Substance: TIGECYCLINE
     Indication: INFECTION PROPHYLAXIS
     Dosage: 50 MG, QD
     Route: 042
     Dates: start: 20170319, end: 20170325
  5. NORVASC [Concomitant]
     Active Substance: AMLODIPINE BESYLATE
     Indication: BLOOD PRESSURE DECREASED
     Dosage: 5 MG, QD
     Route: 048
     Dates: start: 20170322
  6. HUMAN-FIBRINOGEN [Concomitant]
     Active Substance: FIBRINOGEN HUMAN
     Indication: COAGULOPATHY
     Dosage: 1000 MG, QD
     Route: 042
     Dates: start: 20170323, end: 20170325
  7. NIFEDIPINE. [Concomitant]
     Active Substance: NIFEDIPINE
     Indication: BLOOD PRESSURE DECREASED
     Dosage: 10 MG, PRN (SOS)
     Route: 048
     Dates: start: 20170322, end: 20170322
  8. FUROSEMIDE. [Concomitant]
     Active Substance: FUROSEMIDE
     Indication: PROPHYLAXIS
     Dosage: 20 MG, PRN (SOS)
     Route: 042
     Dates: start: 20170316, end: 20170316
  9. MUCOSOLVAN [Concomitant]
     Active Substance: AMBROXOL HYDROCHLORIDE
     Dosage: 30 MG, BID
     Route: 042
     Dates: start: 20170316, end: 20170325
  10. METOPROLOL SUCCINATE. [Concomitant]
     Active Substance: METOPROLOL SUCCINATE
     Indication: BLOOD PRESSURE INCREASED
     Dosage: 47.5 MG, QD
     Route: 048
     Dates: start: 20170609
  11. CEFUROXIME AXETIL. [Concomitant]
     Active Substance: CEFUROXIME AXETIL
     Indication: INFLAMMATION
     Dosage: 250 MG, BID
     Route: 048
     Dates: start: 20170609
  12. MANNITOL. [Concomitant]
     Active Substance: MANNITOL
     Indication: PROPHYLAXIS
     Dosage: 125 ML, PRN (SOS)
     Route: 042
     Dates: start: 20170315, end: 20170315
  13. HEPARIN SODIUM. [Concomitant]
     Active Substance: HEPARIN SODIUM
     Indication: PROPHYLAXIS
     Dosage: 12500 IU, W2D2
     Route: 042
     Dates: start: 20170317, end: 20170325
  14. SINGULAIR [Concomitant]
     Active Substance: MONTELUKAST SODIUM
     Indication: RHINITIS
     Dosage: 10 MG, QD
     Route: 048
     Dates: start: 20170318, end: 20170325
  15. FUROSEMIDE. [Concomitant]
     Active Substance: FUROSEMIDE
     Indication: POLYURIA
     Dosage: 80 MG, PRN (SOS)
     Route: 042
     Dates: start: 20170315, end: 20170315
  16. MYFORTIC [Suspect]
     Active Substance: MYCOPHENOLATE SODIUM
     Indication: RENAL TRANSPLANT
     Dosage: 1440 MG, QD
     Route: 065
     Dates: start: 20170315, end: 20170315
  17. TACROLIMUS. [Suspect]
     Active Substance: TACROLIMUS
     Indication: IMMUNOSUPPRESSANT DRUG THERAPY
     Dosage: 5 MG, QD
     Route: 065
     Dates: start: 20170315, end: 20170322
  18. CLONIDINE. [Concomitant]
     Active Substance: CLONIDINE
     Indication: BLOOD PRESSURE DECREASED
     Dosage: 75 UG, PRN (SOS)
     Route: 048
     Dates: start: 20170321, end: 20170321
  19. HUMAN ALBUMIN [Concomitant]
     Active Substance: ALBUMIN HUMAN
     Indication: PRODUCT USED FOR UNKNOWN INDICATION
     Dosage: 10000 MG, QD
     Route: 042
     Dates: start: 20170321, end: 20170325
  20. SODIUM BICARBONATE. [Concomitant]
     Active Substance: SODIUM BICARBONATE
     Indication: ELECTROLYTE IMBALANCE
     Dosage: 250 ML, BID
     Route: 042
     Dates: start: 20170315, end: 20170315
  21. BASILIXIMAB [Suspect]
     Active Substance: BASILIXIMAB
     Dosage: 20 MG, QD
     Route: 065
     Dates: start: 20170319, end: 20170319
  22. SULFAMETHOXAZOLE [Concomitant]
     Active Substance: SULFAMETHOXAZOLE
     Indication: INFECTION PROPHYLAXIS
     Dosage: 240 MG, QD
     Route: 048
     Dates: start: 20170325
  23. MUCOSOLVAN [Concomitant]
     Active Substance: AMBROXOL HYDROCHLORIDE
     Indication: SPUTUM ABNORMAL
     Dosage: 15 MG, BID (SPRAYING)
     Route: 050
     Dates: start: 20170316, end: 20170322
  24. METHYLPREDNISOLONE. [Suspect]
     Active Substance: METHYLPREDNISOLONE
     Dosage: 280 MG, QD
     Route: 065
     Dates: start: 20170318, end: 20170318
  25. POTASSIUM CHLORIDE. [Concomitant]
     Active Substance: POTASSIUM CHLORIDE
     Dosage: 1000 MG, TID
     Route: 048
     Dates: start: 20170321, end: 20170325
  26. SODIUM BICARBONATE. [Concomitant]
     Active Substance: SODIUM BICARBONATE
     Indication: URINE ALKALINISATION THERAPY
     Dosage: 1000 MG, BID
     Route: 048
     Dates: start: 20170323
  27. HEPATITIS B IMMUNE GLOBULIN [Concomitant]
     Active Substance: HUMAN HEPATITIS B VIRUS IMMUNE GLOBULIN
     Indication: PROPHYLAXIS
     Dosage: 400 IU, PRN (SOS)
     Route: 030
     Dates: start: 20170316, end: 20170316
  28. BASILIXIMAB [Suspect]
     Active Substance: BASILIXIMAB
     Indication: RENAL TRANSPLANT
     Dosage: 20 MG, QD
     Route: 065
     Dates: start: 20170315, end: 20170315
  29. TACROLIMUS. [Suspect]
     Active Substance: TACROLIMUS
     Dosage: 7 MG, QD
     Route: 065
     Dates: start: 20170323, end: 20170608
  30. TACROLIMUS. [Suspect]
     Active Substance: TACROLIMUS
     Dosage: 6 MG, QD
     Route: 065
     Dates: start: 20170609
  31. AMIKACIN. [Concomitant]
     Active Substance: AMIKACIN
     Indication: PROPHYLAXIS
     Dosage: 400 MG, PRN
     Route: 061
     Dates: start: 20170315, end: 20170315
  32. DEXAMETHASONE. [Concomitant]
     Active Substance: DEXAMETHASONE
     Indication: PROPHYLAXIS
     Dosage: 10 MG, PRN
     Route: 042
     Dates: start: 20170315, end: 20170315
  33. ESOMEPRAZOLE [Concomitant]
     Active Substance: ESOMEPRAZOLE
     Indication: GASTRITIS PROPHYLAXIS
     Dosage: 40 MG, QD
     Route: 042
     Dates: start: 20170316, end: 20170325
  34. AVELOX [Concomitant]
     Active Substance: MOXIFLOXACIN HYDROCHLORIDE
     Indication: INFECTION PROPHYLAXIS
     Dosage: 400 MG, QD
     Route: 042
     Dates: start: 20170315, end: 20170319
  35. TALCID [Concomitant]
     Active Substance: HYDROTALCITE
     Indication: GASTRITIS PROPHYLAXIS
     Dosage: 1000 MG, QD
     Route: 048
     Dates: start: 20170315
  36. METHYLPREDNISOLONE. [Suspect]
     Active Substance: METHYLPREDNISOLONE
     Indication: IMMUNOSUPPRESSANT DRUG THERAPY
     Dosage: 660 MG, QD
     Route: 065
     Dates: start: 20170315, end: 20170315
  37. METHYLPREDNISOLONE. [Suspect]
     Active Substance: METHYLPREDNISOLONE
     Dosage: 40 MG, QD
     Route: 065
     Dates: start: 20170319, end: 20170322
  38. METHYLPREDNISOLONE. [Suspect]
     Active Substance: METHYLPREDNISOLONE
     Dosage: 20 MG, QD
     Route: 065
     Dates: start: 20170323, end: 20170325
  39. PREDNISONE. [Suspect]
     Active Substance: PREDNISONE
     Indication: IMMUNOSUPPRESSANT DRUG THERAPY
     Dosage: 20 MG, QD
     Route: 065
     Dates: start: 20170325
  40. DIAZEPAM. [Concomitant]
     Active Substance: DIAZEPAM
     Indication: SEDATION
     Dosage: 5 MG, QD
     Route: 048
     Dates: start: 20170315, end: 20170315
  41. DILTIAZEM HYDROCHLORIDE. [Concomitant]
     Active Substance: DILTIAZEM HYDROCHLORIDE
     Indication: PROPHYLAXIS
     Dosage: 30 MG, BID
     Route: 048
     Dates: start: 20170316
  42. POTASSIUM CHLORIDE. [Concomitant]
     Active Substance: POTASSIUM CHLORIDE
     Indication: MINERAL SUPPLEMENTATION
     Dosage: 500 MG, TID
     Route: 048
     Dates: start: 20170320, end: 20170320
  43. POTASSIUM CITRATE. [Concomitant]
     Active Substance: POTASSIUM CITRATE
     Indication: HYPOKALAEMIA
     Dosage: 20 ML, QD
     Route: 048
     Dates: start: 20170320, end: 20170322
  44. DIAZEPAM. [Concomitant]
     Active Substance: DIAZEPAM
     Dosage: 5 MG, QD
     Route: 048
     Dates: start: 20170322, end: 20170325
  45. CASPOFUNGIN ACETATE. [Concomitant]
     Active Substance: CASPOFUNGIN ACETATE
     Indication: INFECTION PROPHYLAXIS
     Dosage: 50 MG, QD
     Route: 042
     Dates: start: 20170315, end: 20170322
  46. SODIUM BICARBONATE. [Concomitant]
     Active Substance: SODIUM BICARBONATE
     Dosage: 500 MG, BID
     Route: 048
     Dates: start: 20170609
  47. FUROSEMIDE. [Concomitant]
     Active Substance: FUROSEMIDE
     Dosage: 40 MG, QD
     Route: 042
     Dates: start: 20170317, end: 20170318
  48. FUROSEMIDE. [Concomitant]
     Active Substance: FUROSEMIDE
     Dosage: 40 MG, BID
     Route: 042
     Dates: start: 20170319, end: 20170325

REACTIONS (14)
  - Lymphocyte count decreased [Recovered/Resolved]
  - White blood cell count increased [Recovered/Resolved]
  - Lymphocyte count increased [Unknown]
  - Red blood cells urine positive [Unknown]
  - Neutrophil count increased [Recovered/Resolved]
  - C-reactive protein increased [Unknown]
  - Hypokalaemia [Recovered/Resolved]
  - Peritonsillitis [Recovered/Resolved]
  - Constipation [Recovered/Resolved]
  - Wound complication [Recovered/Resolved]
  - Protein urine present [Unknown]
  - Anaemia [Recovering/Resolving]
  - Hypoalbuminaemia [Recovered/Resolved]
  - Haemoglobin decreased [Unknown]

NARRATIVE: CASE EVENT DATE: 20170316
